FAERS Safety Report 9788625 (Version 1)
Quarter: 2013Q4

REPORT INFORMATION
  Report Type: Spontaneous
  Country: US (occurrence: US)
  Receive Date: 20131223
  Receipt Date: 20131223
  Transmission Date: 20140711
  Serious: Yes (Other)
  Sender: FDA-Public Use
  Company Number: US-MALLINCKRODT-T201305174

PATIENT
  Sex: Male

DRUGS (1)
  1. CONRAY 30 [Suspect]
     Indication: SPINAL MYELOGRAM
     Route: 037

REACTIONS (1)
  - Incorrect route of drug administration [Unknown]
